FAERS Safety Report 7801716-7 (Version None)
Quarter: 2011Q4

REPORT INFORMATION
  Report Type: 
  Country: None (occurrence: None)
  Receive Date: 20111007
  Receipt Date: 20111003
  Transmission Date: 20120403
  Serious: Yes (Death)
  Sender: FDA-Public Use
  Company Number: VN-JNJFOC-20110912445

PATIENT
  Age: 48 Year
  Sex: Male

DRUGS (4)
  1. SPORANOX [Suspect]
     Indication: SYSTEMIC MYCOSIS
     Route: 041
     Dates: start: 20110922, end: 20110923
  2. SPORANOX [Suspect]
     Route: 041
     Dates: start: 20110924
  3. IMIPENEM [Concomitant]
     Indication: PNEUMONIA
     Route: 042
     Dates: start: 20110917, end: 20110928
  4. LEVOFLOXACIN [Concomitant]
     Indication: PNEUMONIA
     Route: 065
     Dates: start: 20110917, end: 20110928

REACTIONS (3)
  - RED BLOOD CELL COUNT DECREASED [None]
  - CONDITION AGGRAVATED [None]
  - THROMBOCYTOPENIA [None]
